FAERS Safety Report 8849178 (Version 1)
Quarter: 2012Q4

REPORT INFORMATION
  Report Type: 
  Country: AR (occurrence: AR)
  Receive Date: 20121019
  Receipt Date: 20121019
  Transmission Date: 20130627
  Serious: Yes (Hospitalization)
  Sender: FDA-Public Use
  Company Number: PHHY2012AR092957

PATIENT
  Sex: Female

DRUGS (2)
  1. DIOVAN [Suspect]
     Indication: CARDIOMEGALY
     Dosage: 160mg, per day
  2. DIOVAN [Suspect]
     Indication: PALPITATIONS
     Dosage: 320 mg, UNK

REACTIONS (2)
  - Depression [Recovering/Resolving]
  - Blood pressure increased [Recovering/Resolving]
